FAERS Safety Report 8909494 (Version 2)
Quarter: 2012Q4

REPORT INFORMATION
  Report Type: Report from Study
  Country: DE (occurrence: DE)
  Receive Date: 20121115
  Receipt Date: 20121130
  Transmission Date: 20130627
  Serious: Yes (Hospitalization)
  Sender: FDA-Public Use
  Company Number: DE-BAYER-2012-116871

PATIENT
  Sex: Male
  Weight: 74 kg

DRUGS (11)
  1. REGORAFENIB [Suspect]
     Indication: METASTATIC COLORECTAL CANCER
     Dosage: 160 mg, QD (3 weeks on/1 week off)
     Route: 048
     Dates: start: 20120730, end: 20120819
  2. REGORAFENIB [Suspect]
     Indication: METASTATIC COLORECTAL CANCER
     Dosage: 160 mg, QD (3 weeks on/1 week off)
     Route: 048
     Dates: start: 20120827, end: 20120916
  3. REGORAFENIB [Suspect]
     Indication: METASTATIC COLORECTAL CANCER
     Dosage: 160 mg, QD (3 weeks on/1 week off)
     Route: 048
     Dates: start: 20120926, end: 20121016
  4. REGORAFENIB [Suspect]
     Indication: METASTATIC COLORECTAL CANCER
     Dosage: 160 mg, QD (3 weeks on/1 week off)
     Route: 048
     Dates: start: 20121024, end: 20121030
  5. MCP [Concomitant]
     Indication: OBSTIPATION
     Dosage: 20 drops three times daily
     Route: 048
     Dates: start: 20120713
  6. METOPROLOL [Concomitant]
     Indication: HYPERTENSION
     Dosage: 47.5 mg, daily
     Route: 048
     Dates: start: 20120813
  7. ATOSIL [Concomitant]
     Indication: ANXIETY
     Dosage: 5 drops twice daily
     Route: 048
     Dates: start: 20120907
  8. PANTOZOL [Concomitant]
     Indication: PROPHYLAXIS
     Dosage: 40 mg, BID
     Route: 048
     Dates: start: 20120907
  9. NOVALGIN [Concomitant]
     Indication: PAIN PROPHYLAXIS
     Dosage: 30 drops, three time daily
     Route: 048
     Dates: start: 20120907
  10. LYRICA [Concomitant]
     Indication: ANXIETY
     Dosage: 50 mg, QD
     Route: 048
     Dates: start: 20120912
  11. CIPRALEX [Concomitant]
     Indication: ANXIETY
     Dosage: 10 mg, QD
     Route: 048
     Dates: start: 20120912

REACTIONS (1)
  - Subileus [Recovered/Resolved]
